FAERS Safety Report 8595334-3 (Version None)
Quarter: 2012Q3

REPORT INFORMATION
  Report Type: 
  Country: None (occurrence: None)
  Receive Date: 20120815
  Receipt Date: 20120810
  Transmission Date: 20120928
  Serious: Yes (Other)
  Sender: FDA-Public Use
  Company Number: PHHY2012DE049312

PATIENT
  Sex: Female
  Weight: 52 kg

DRUGS (5)
  1. PENICILLIN VK [Concomitant]
     Indication: SPLENECTOMY
     Dosage: 1.25 MEGA U
  2. LEVOTHYROXINE SODIUM [Concomitant]
     Indication: SECONDARY HYPOTHYROIDISM
     Dosage: 125 UG, QD
     Route: 048
  3. CAPTOPRIL [Concomitant]
     Indication: CARDIOMYOPATHY
     Dosage: 6.25 MG, TID
     Route: 048
  4. DESFERAL [Suspect]
     Indication: THALASSAEMIA BETA
     Dosage: 2.5(UNSPECIFIED UNIT) ON MONDAY-THURSDAY
     Route: 058
     Dates: start: 19980101
  5. CONTRACEPTIVES NOS [Concomitant]

REACTIONS (1)
  - ELECTROCARDIOGRAM QT PROLONGED [None]
